FAERS Safety Report 4380901-3 (Version None)
Quarter: 2004Q2

REPORT INFORMATION
  Report Type: 
  Country: None (occurrence: None)
  Receive Date: 20040616
  Receipt Date: 20040528
  Transmission Date: 20050107
  Serious: Yes (Life-Threatening, Hospitalization)
  Sender: FDA-Public Use
  Company Number: EWC040639444

PATIENT
  Age: 51 Year
  Sex: Female
  Weight: 77 kg

DRUGS (6)
  1. OLANZAPINE [Suspect]
     Indication: DELIRIUM
     Dosage: 5 MG DAY
     Dates: start: 20040415, end: 20040418
  2. CELLCEPT [Concomitant]
  3. SOLU-MEDROL [Concomitant]
  4. CORTEF [Concomitant]
  5. ATG-FRESENIUS  (ANTITHYMOCYTE IMMUNOGLOBULIN) [Concomitant]
  6. LASIX [Concomitant]

REACTIONS (7)
  - COMPLICATIONS OF TRANSPLANTED KIDNEY [None]
  - DIALYSIS [None]
  - ELECTROENCEPHALOGRAM ABNORMAL [None]
  - HALLUCINATION, VISUAL [None]
  - NEUROLEPTIC MALIGNANT SYNDROME [None]
  - RENAL NECROSIS [None]
  - ULTRASOUND KIDNEY ABNORMAL [None]
